FAERS Safety Report 13370548 (Version 1)
Quarter: 2017Q1

REPORT INFORMATION
  Report Type: Spontaneous
  Country: US (occurrence: US)
  Receive Date: 20170324
  Receipt Date: 20170324
  Transmission Date: 20170429
  Serious: No
  Sender: FDA-Public Use
  Company Number: US-ROCHE-1041590

PATIENT
  Age: 24 Year
  Sex: Female

DRUGS (1)
  1. XOLAIR [Suspect]
     Active Substance: OMALIZUMAB
     Indication: URTICARIA
     Route: 065

REACTIONS (6)
  - Asthenia [Unknown]
  - Flushing [Unknown]
  - Headache [Unknown]
  - Local swelling [Unknown]
  - Pharyngeal oedema [Unknown]
  - Fatigue [Unknown]
